FAERS Safety Report 9787588 (Version 1)
Quarter: 2013Q4

REPORT INFORMATION
  Report Type: Spontaneous
  Country: US (occurrence: None)
  Receive Date: 20131226
  Receipt Date: 20131226
  Transmission Date: 20140711
  Serious: Yes (Hospitalization, Other)
  Sender: FDA-Public Use
  Company Number: 2013-US-004427

PATIENT
  Age: 29 Year
  Sex: Female
  Weight: 49.9 kg

DRUGS (1)
  1. XYREM [Suspect]
     Indication: NARCOLEPSY
     Route: 048
     Dates: start: 200803

REACTIONS (18)
  - Accident [None]
  - Ankle fracture [None]
  - Ligament rupture [None]
  - Nerve injury [None]
  - Feeling abnormal [None]
  - Cold sweat [None]
  - Feeling hot [None]
  - Palpitations [None]
  - Ocular hyperaemia [None]
  - Mydriasis [None]
  - Insomnia [None]
  - Heart rate increased [None]
  - Condition aggravated [None]
  - Decreased appetite [None]
  - Weight decreased [None]
  - Hyperhidrosis [None]
  - Anxiety [None]
  - Procedural pain [None]
